FAERS Safety Report 11225538 (Version 1)
Quarter: 2015Q2

REPORT INFORMATION
  Report Type: Report from Study
  Country: FR (occurrence: FR)
  Receive Date: 20150629
  Receipt Date: 20150629
  Transmission Date: 20150821
  Serious: Yes (Hospitalization, Other)
  Sender: FDA-Public Use
  Company Number: FR-GLAXOSMITHKLINE-FR2015GSK091790

PATIENT
  Age: 90 Year
  Sex: Male

DRUGS (9)
  1. NOVOMIX [Concomitant]
     Active Substance: INSULIN ASPART
  2. TEMERIT [Concomitant]
     Active Substance: NEBIVOLOL
  3. OMEGA-3-ACID ETHYL ESTERS. [Suspect]
     Active Substance: OMEGA-3-ACID ETHYL ESTERS
     Indication: ISCHAEMIC HEART DISEASE PROPHYLAXIS
     Dosage: UNK
     Dates: start: 20090702
  4. AMLOR [Concomitant]
     Active Substance: AMLODIPINE BESYLATE
  5. TRIATEC [Concomitant]
     Active Substance: RAMIPRIL
  6. ISOPHANE INSULIN [Concomitant]
     Active Substance: INSULIN NOS
  7. KARDEGIC [Concomitant]
     Active Substance: ASPIRIN LYSINE
  8. TAHOR [Concomitant]
     Active Substance: ATORVASTATIN CALCIUM
  9. PLAVIX [Concomitant]
     Active Substance: CLOPIDOGREL BISULFATE

REACTIONS (1)
  - Lung infection [Unknown]

NARRATIVE: CASE EVENT DATE: 20100628
